FAERS Safety Report 8304034-6 (Version None)
Quarter: 2012Q2

REPORT INFORMATION
  Report Type: 
  Country: None (occurrence: None)
  Receive Date: 20120423
  Receipt Date: 20120417
  Transmission Date: 20120825
  Serious: Yes (Other)
  Sender: FDA-Public Use
  Company Number: PHHY2012US014473

PATIENT
  Age: 60 Year
  Sex: Female
  Weight: 68.027 kg

DRUGS (8)
  1. CALCIUM [Concomitant]
     Dosage: 1 DF, DAILY
  2. CITALOPRAM HYDROBROMIDE [Concomitant]
     Dosage: 1 DF, NIGHTLY
  3. GENTEAL [Suspect]
     Dosage: 2-3 DROPS EACH EYE
     Route: 047
     Dates: end: 20120215
  4. ASPIRIN [Concomitant]
  5. LIPITOR [Concomitant]
     Dosage: 1 DF, NIGHTLY
  6. LEVOTHYROXINE SODIUM [Concomitant]
     Dosage: 50MCG ONE DAILY
  7. FISH OIL [Concomitant]
     Dosage: 1 G, DAILY
  8. GLUCOSAMINE W/CHONDROITIN [Concomitant]
     Dosage: 1 DF, DAILY

REACTIONS (3)
  - CONJUNCTIVAL HAEMORRHAGE [None]
  - FOREIGN BODY IN EYE [None]
  - OCULAR HYPERAEMIA [None]
